FAERS Safety Report 23840903 (Version 2)
Quarter: 2024Q2

REPORT INFORMATION
  Report Type: Spontaneous
  Country: IT (occurrence: None)
  Receive Date: 20240510
  Receipt Date: 20240531
  Transmission Date: 20240716
  Serious: Yes (Other)
  Sender: FDA-Public Use
  Company Number: IT-ROCHE-3560466

PATIENT
  Age: 67 Year
  Sex: Male

DRUGS (14)
  1. TECENTRIQ [Suspect]
     Active Substance: ATEZOLIZUMAB
     Indication: Small cell lung cancer
     Dosage: DATE OF LAST ADMINISTRATION OF ATEZOLIZUMAB ON 12/MAR/2024.
     Route: 065
     Dates: start: 20230329
  2. PAROXETINE [Concomitant]
     Active Substance: PAROXETINE
  3. EUTHYROX [Concomitant]
     Active Substance: LEVOTHYROXINE SODIUM
  4. VALPROATE SODIUM [Concomitant]
     Active Substance: VALPROATE SODIUM
  5. FLURAZEPAM HYDROCHLORIDE [Concomitant]
     Active Substance: FLURAZEPAM HYDROCHLORIDE
  6. TRAZODONE HYDROCHLORIDE [Concomitant]
     Active Substance: TRAZODONE HYDROCHLORIDE
  7. COUMADIN [Concomitant]
     Active Substance: WARFARIN SODIUM
  8. ATORVASTATIN [Concomitant]
     Active Substance: ATORVASTATIN
  9. LASIX [Concomitant]
     Active Substance: FUROSEMIDE
  10. FOSTER [Concomitant]
     Active Substance: BECLOMETHASONE\FORMOTEROL
  11. UMECLIDINIUM BROMIDE [Concomitant]
     Active Substance: UMECLIDINIUM BROMIDE
  12. QUETIAPINE [Concomitant]
     Active Substance: QUETIAPINE
  13. LYRICA [Concomitant]
     Active Substance: PREGABALIN
  14. CANRENOATE POTASSIUM [Concomitant]
     Active Substance: CANRENOATE POTASSIUM

REACTIONS (1)
  - Pemphigoid [Unknown]
